FAERS Safety Report 6555239-6 (Version None)
Quarter: 2010Q1

REPORT INFORMATION
  Report Type: 
  Country: None (occurrence: None)
  Receive Date: 20100128
  Receipt Date: 20081205
  Transmission Date: 20100710
  Serious: No
  Sender: FDA-Public Use
  Company Number: A0759487A

PATIENT
  Age: 35 Year
  Sex: Female

DRUGS (2)
  1. BUPROPION [Suspect]
     Indication: DEPRESSION
     Dosage: 350MG PER DAY
     Route: 048
     Dates: start: 20040101, end: 20040101
  2. SYNTHROID [Concomitant]

REACTIONS (4)
  - EYE SWELLING [None]
  - LIP SWELLING [None]
  - ORAL PRURITUS [None]
  - PRURITUS [None]
